FAERS Safety Report 10310356 (Version 1)
Quarter: 2014Q3

REPORT INFORMATION
  Report Type: Spontaneous
  Country: IR (occurrence: None)
  Receive Date: 20140715
  Receipt Date: 20140715
  Transmission Date: 20150326
  Serious: Yes (Death, Other)
  Sender: FDA-Public Use
  Company Number: 2014ELT00002

PATIENT
  Age: 52 Year
  Sex: Male

DRUGS (1)
  1. NALTREXONE (NALTREXONE) [Suspect]
     Active Substance: NALTREXONE
     Indication: DRUG ABUSE
     Route: 048

REACTIONS (4)
  - Myocardial infarction [None]
  - Drug withdrawal syndrome [None]
  - Stress [None]
  - Sudden death [None]
